FAERS Safety Report 8022700-7 (Version None)
Quarter: 2012Q1

REPORT INFORMATION
  Report Type: 
  Country: None (occurrence: None)
  Receive Date: 20120104
  Receipt Date: 20111222
  Transmission Date: 20120608
  Serious: Yes (Other)
  Sender: FDA-Public Use
  Company Number: US-UCBSA-048376

PATIENT
  Age: 56 Year
  Sex: Female

DRUGS (1)
  1. CIMZIA [Suspect]
     Indication: RHEUMATOID ARTHRITIS
     Route: 058
     Dates: start: 20110325, end: 20111024

REACTIONS (3)
  - BUTTERFLY RASH [None]
  - ADVERSE EVENT [None]
  - GASTROINTESTINAL DISORDER [None]
